FAERS Safety Report 14314612 (Version 2)
Quarter: 2018Q1

REPORT INFORMATION
  Report Type: Spontaneous
  Country: US (occurrence: US)
  Receive Date: 20171221
  Receipt Date: 20180305
  Transmission Date: 20180509
  Serious: Yes (Hospitalization)
  Sender: FDA-Public Use
  Company Number: US-VIFOR (INTERNATIONAL) INC.-VIT-2017-13625

PATIENT
  Age: 48 Year
  Sex: Male
  Weight: 72.64 kg

DRUGS (9)
  1. ATORVASTATIN CALCIUM. [Concomitant]
     Active Substance: ATORVASTATIN CALCIUM
  2. LANTUS [Concomitant]
     Active Substance: INSULIN GLARGINE
  3. VITAMINS NOS [Concomitant]
     Active Substance: VITAMINS
  4. MURINE TEARS [Concomitant]
     Indication: DRY EYE
  5. FERROUS FUMARATE [Concomitant]
     Active Substance: FERROUS FUMARATE
  6. LABETALOL HYDROCHLORIDE. [Concomitant]
     Active Substance: LABETALOL HYDROCHLORIDE
  7. VELTASSA [Suspect]
     Active Substance: PATIROMER
     Indication: HYPERKALAEMIA
     Route: 048
     Dates: start: 20160930
  8. HUMALOG [Concomitant]
     Active Substance: INSULIN LISPRO
  9. SALBUTAMOL SULFATE [Concomitant]
     Active Substance: ALBUTEROL SULFATE

REACTIONS (3)
  - Peripheral swelling [Recovered/Resolved]
  - Localised infection [Recovered/Resolved]
  - Ligament sprain [Recovered/Resolved]

NARRATIVE: CASE EVENT DATE: 201710
